FAERS Safety Report 7607014-9 (Version None)
Quarter: 2011Q3

REPORT INFORMATION
  Report Type: 
  Country: None (occurrence: None)
  Receive Date: 20110713
  Receipt Date: 20110627
  Transmission Date: 20111222
  Serious: Yes (Hospitalization)
  Sender: FDA-Public Use
  Company Number: US-BAYER-2011-026080

PATIENT
  Age: 29 Year
  Sex: Female
  Weight: 114.29 kg

DRUGS (5)
  1. YAZ [Suspect]
     Indication: CONTRACEPTION
     Dosage: UNK
     Route: 048
     Dates: start: 20090120, end: 20090708
  2. YAZ [Suspect]
     Indication: MENSTRUATION IRREGULAR
  3. PREVACID [Concomitant]
     Dosage: UNK
     Dates: start: 20090319
  4. SUCRALFATE [Concomitant]
     Dosage: UNK
     Dates: start: 20090319
  5. HYDROCODONE [Concomitant]
     Dosage: UNK
     Dates: start: 20090307

REACTIONS (2)
  - GALLBLADDER DISORDER [None]
  - CHOLECYSTITIS CHRONIC [None]
